FAERS Safety Report 17798803 (Version 1)
Quarter: 2020Q2

REPORT INFORMATION
  Report Type: Spontaneous
  Country: US (occurrence: US)
  Receive Date: 20200518
  Receipt Date: 20200518
  Transmission Date: 20200714
  Serious: No
  Sender: FDA-Public Use
  Company Number: None

PATIENT
  Age: 31 Year
  Sex: Female
  Weight: 65.25 kg

DRUGS (1)
  1. ESCITALOPRAM 10MG TABLET [Suspect]
     Active Substance: ESCITALOPRAM OXALATE
     Indication: ANXIETY
     Dosage: ?          QUANTITY:1 TABLET(S);?
     Route: 048
     Dates: start: 20200515, end: 20200518

REACTIONS (3)
  - Nervousness [None]
  - Heart rate increased [None]
  - Feeling of body temperature change [None]

NARRATIVE: CASE EVENT DATE: 20200516
